FAERS Safety Report 5730196-0 (Version None)
Quarter: 2008Q2

REPORT INFORMATION
  Report Type: 
  Country: None (occurrence: None)
  Receive Date: 20080502
  Receipt Date: 20080421
  Transmission Date: 20081010
  Serious: Yes (Other)
  Sender: FDA-Public Use
  Company Number: B0518607A

PATIENT
  Age: 49 Year
  Sex: Female

DRUGS (5)
  1. LAMOTRIGINE [Suspect]
     Indication: BIPOLAR DISORDER
     Dosage: 200 MG/ PER DAY
  2. LITHIUM CARBONATE [Suspect]
     Indication: BIPOLAR DISORDER
  3. VALPROIC ACID [Suspect]
     Indication: BIPOLAR DISORDER
     Dosage: 1000 MG/PER DAY
  4. OLANZAPINE [Suspect]
     Indication: DEPRESSION
     Dosage: 5 MG/PER DAY
  5. ZIPRASIDONE HCL [Concomitant]

REACTIONS (6)
  - BIPOLAR I DISORDER [None]
  - BRADYPHRENIA [None]
  - HYPERHIDROSIS [None]
  - MYOCLONUS [None]
  - PSYCHOMOTOR RETARDATION [None]
  - UNEVALUABLE EVENT [None]
